FAERS Safety Report 9346625 (Version 3)
Quarter: 2013Q3

REPORT INFORMATION
  Report Type: Spontaneous
  Country: US (occurrence: US)
  Receive Date: 20130613
  Receipt Date: 20130819
  Transmission Date: 20140515
  Serious: Yes (Other)
  Sender: FDA-Public Use
  Company Number: US-PFIZER INC-2013175509

PATIENT
  Age: 63 Year
  Sex: Female

DRUGS (1)
  1. LIPITOR [Suspect]
     Dosage: 10 MG, DAILY
     Route: 048
     Dates: start: 20111024, end: 20111107

REACTIONS (9)
  - Activities of daily living impaired [Unknown]
  - Cyst [Unknown]
  - Pain [Unknown]
  - Intervertebral disc degeneration [Unknown]
  - Spinal column stenosis [Unknown]
  - Sacroiliitis [Unknown]
  - Back pain [Recovered/Resolved]
  - Pain in extremity [Recovered/Resolved]
  - Fatigue [Recovered/Resolved]
